FAERS Safety Report 5992704-4 (Version None)
Quarter: 2008Q4

REPORT INFORMATION
  Report Type: 
  Country: None (occurrence: None)
  Receive Date: 20081211
  Receipt Date: 20080528
  Transmission Date: 20090506
  Serious: No
  Sender: FDA-Public Use
  Company Number: US-AMGEN-KDL279924

PATIENT
  Sex: Female
  Weight: 83.5 kg

DRUGS (15)
  1. ENBREL [Suspect]
     Indication: RHEUMATOID ARTHRITIS
     Route: 058
     Dates: start: 20071003
  2. ALENDRONATE SODIUM [Concomitant]
     Route: 048
  3. ASCORBIC ACID [Concomitant]
     Route: 048
  4. VITAMIN D [Concomitant]
     Route: 048
  5. CALCIUM [Concomitant]
     Route: 048
  6. TUSSIONEX [Concomitant]
     Route: 048
  7. MULTI-VITAMINS [Concomitant]
     Route: 048
  8. FOLIC ACID [Concomitant]
     Route: 048
  9. PLAQUENIL [Concomitant]
     Route: 048
  10. IBUPROFEN [Concomitant]
     Route: 048
  11. PREVACID [Concomitant]
     Route: 048
  12. METHOTREXATE [Concomitant]
     Route: 048
  13. PAXIL [Concomitant]
     Route: 048
  14. PREDNISONE TAB [Concomitant]
     Route: 048
  15. VALACYCLOVIR HYDROCHLORIDE [Concomitant]
     Route: 048
     Dates: start: 20080515

REACTIONS (1)
  - HERPES VIRUS INFECTION [None]
